FAERS Safety Report 8039824-0 (Version None)
Quarter: 2012Q1

REPORT INFORMATION
  Report Type: 
  Country: None (occurrence: None)
  Receive Date: 20120111
  Receipt Date: 20111220
  Transmission Date: 20120608
  Serious: No
  Sender: FDA-Public Use
  Company Number: US-AMGEN-USASP2011067977

PATIENT
  Age: 53 Year
  Sex: Female

DRUGS (1)
  1. ENBREL [Suspect]
     Indication: RHEUMATOID ARTHRITIS
     Dosage: 50 MG, QWK
     Dates: start: 20110912

REACTIONS (9)
  - PRODUCTIVE COUGH [None]
  - NASAL DISCOMFORT [None]
  - THROAT IRRITATION [None]
  - RHEUMATOID ARTHRITIS [None]
  - LACRIMATION INCREASED [None]
  - PULMONARY CONGESTION [None]
  - NASAL CONGESTION [None]
  - RHINORRHOEA [None]
  - EYE PRURITUS [None]
